FAERS Safety Report 5513157-6 (Version None)
Quarter: 2007Q4

REPORT INFORMATION
  Report Type: 
  Country: None (occurrence: None)
  Receive Date: 20071112
  Receipt Date: 20070206
  Transmission Date: 20080405
  Serious: No
  Sender: FDA-Public Use
  Company Number: US-BRISTOL-MYERS SQUIBB COMPANY-13671136

PATIENT
  Age: 42 Year
  Sex: Male
  Weight: 77 kg

DRUGS (4)
  1. SUSTIVA [Suspect]
     Indication: HIV INFECTION
     Dates: start: 20070101, end: 20070101
  2. BACTRIM [Concomitant]
  3. FLUCONAZOLE [Concomitant]
  4. MOUTHWASH [Concomitant]

REACTIONS (1)
  - HEADACHE [None]
